FAERS Safety Report 7986200-2 (Version None)
Quarter: 2011Q4

REPORT INFORMATION
  Report Type: 
  Country: None (occurrence: None)
  Receive Date: 20111216
  Receipt Date: 20111213
  Transmission Date: 20120403
  Serious: Yes (Death, Hospitalization)
  Sender: FDA-Public Use
  Company Number: US-GLAXOSMITHKLINE-A0957992A

PATIENT
  Age: 78 Year
  Sex: Male

DRUGS (15)
  1. ALTACE [Concomitant]
  2. NITROGLYCERIN [Concomitant]
  3. ASPIRIN [Concomitant]
  4. CENTRUM SILVER [Concomitant]
  5. ACTOS [Concomitant]
  6. HECTOROL [Concomitant]
  7. VENOFER [Concomitant]
  8. MINITRAN [Concomitant]
  9. TOPROL-XL [Concomitant]
  10. LAMICTAL [Suspect]
     Indication: EPILEPSY
     Dosage: 150MG TWICE PER DAY
     Route: 048
  11. ARANESP [Concomitant]
  12. HEPARIN [Concomitant]
  13. NORVASC [Concomitant]
  14. ZOCOR [Concomitant]
  15. DIALYSIS [Concomitant]

REACTIONS (2)
  - MYOCARDIAL INFARCTION [None]
  - CIRCULATORY COLLAPSE [None]
